FAERS Safety Report 14214137 (Version 1)
Quarter: 2017Q4

REPORT INFORMATION
  Report Type: Spontaneous
  Country: US (occurrence: US)
  Receive Date: 20171122
  Receipt Date: 20171122
  Transmission Date: 20180321
  Serious: No
  Sender: FDA-Public Use
  Company Number: US-APOTEX-2017AP016278

PATIENT
  Age: 51 Year
  Sex: Male

DRUGS (5)
  1. LACOSAMIDE. [Suspect]
     Active Substance: LACOSAMIDE
     Indication: POST-ANOXIC MYOCLONUS
  2. BACLOFEN INTRATHECAL [Suspect]
     Active Substance: BACLOFEN
     Indication: POST-ANOXIC MYOCLONUS
     Route: 037
  3. CLONAZEPAM TABLETS USP [Suspect]
     Active Substance: CLONAZEPAM
     Indication: MYOCLONUS
     Route: 065
  4. LEVETIRACETAM. [Suspect]
     Active Substance: LEVETIRACETAM
     Indication: MYOCLONUS
     Route: 065
  5. VALPROIC ACID [D] [Suspect]
     Active Substance: VALPROIC ACID
     Indication: MYOCLONUS
     Route: 065

REACTIONS (3)
  - Tremor [Unknown]
  - Sedation complication [Unknown]
  - Drug effect incomplete [Unknown]
